FAERS Safety Report 7013817-4 (Version None)
Quarter: 2010Q3

REPORT INFORMATION
  Report Type: 
  Country: None (occurrence: None)
  Receive Date: 20100924
  Receipt Date: 20100902
  Transmission Date: 20110219
  Serious: No
  Sender: FDA-Public Use
  Company Number: US-BAYER-201033010NA

PATIENT
  Age: 74 Year
  Sex: Female

DRUGS (1)
  1. MAGNEVIST [Suspect]
     Indication: NUCLEAR MAGNETIC RESONANCE IMAGING THORACIC
     Dosage: AS USED: 20 ML
     Dates: start: 20100902, end: 20100902

REACTIONS (2)
  - PRURITUS [None]
  - URTICARIA [None]
